FAERS Safety Report 11321368 (Version 1)
Quarter: 2015Q3

REPORT INFORMATION
  Report Type: Spontaneous
  Country: FR (occurrence: FR)
  Receive Date: 20150729
  Receipt Date: 20150729
  Transmission Date: 20151125
  Serious: Yes (Disabling)
  Sender: FDA-Public Use
  Company Number: FR-MYLANLABS-2015M1024338

PATIENT

DRUGS (4)
  1. LYSANXIA [Concomitant]
     Active Substance: PRAZEPAM
     Indication: ANXIETY
  2. CARBOLEVURE                        /00858201/ [Concomitant]
     Indication: PRODUCT USED FOR UNKNOWN INDICATION
  3. LETROZOLE MYLAN 2,5 MG, COMPRIM? PELLICUL? [Suspect]
     Active Substance: LETROZOLE
     Indication: BREAST CANCER
     Dosage: 1 DF, QD
     Dates: start: 2013
  4. TRIMEBUTINE [Concomitant]
     Active Substance: TRIMEBUTINE
     Indication: PRODUCT USED FOR UNKNOWN INDICATION
     Dosage: 2 DF, QD

REACTIONS (3)
  - Bone pain [Unknown]
  - Arthralgia [Unknown]
  - Walking disability [Unknown]

NARRATIVE: CASE EVENT DATE: 20150712
